FAERS Safety Report 6035427-8 (Version None)
Quarter: 2009Q1

REPORT INFORMATION
  Report Type: 
  Country: None (occurrence: None)
  Receive Date: 20090113
  Receipt Date: 20090108
  Transmission Date: 20090719
  Serious: Yes (Other)
  Sender: FDA-Public Use
  Company Number: SE-JNJFOC-20090101375

PATIENT
  Sex: Male

DRUGS (4)
  1. HALDOL [Suspect]
     Indication: DRUG USE FOR UNKNOWN INDICATION
     Route: 050
  2. ORIFIL [Concomitant]
     Route: 065
  3. DIAZEPAM [Concomitant]
     Route: 065
  4. SLEEPING PILLS NOS [Concomitant]
     Route: 065

REACTIONS (5)
  - DRY MOUTH [None]
  - FATIGUE [None]
  - INDIFFERENCE [None]
  - TREMOR [None]
  - WEIGHT INCREASED [None]
